FAERS Safety Report 12790853 (Version 1)
Quarter: 2016Q3

REPORT INFORMATION
  Report Type: Spontaneous
  Country: US (occurrence: US)
  Receive Date: 20160929
  Receipt Date: 20160929
  Transmission Date: 20161109
  Serious: Yes (Hospitalization)
  Sender: FDA-Public Use
  Company Number: US-ACCORD-044449

PATIENT
  Age: 7 Year
  Sex: Male

DRUGS (2)
  1. METHOTREXATE. [Suspect]
     Active Substance: METHOTREXATE
     Indication: ACUTE LYMPHOCYTIC LEUKAEMIA
  2. MERCAPTOPURINE/MERCAPTOPURINE ANHYDROUS [Concomitant]
     Dosage: 6- MERCAPTOPURINE

REACTIONS (3)
  - Granuloma [Recovering/Resolving]
  - Encephalopathy [Recovered/Resolved]
  - Pneumonia cryptococcal [Recovering/Resolving]
